FAERS Safety Report 4558612-0 (Version None)
Quarter: 2005Q1

REPORT INFORMATION
  Report Type: 
  Country: None (occurrence: None)
  Receive Date: 20050121
  Receipt Date: 20050107
  Transmission Date: 20050727
  Serious: Yes (Other)
  Sender: FDA-Public Use
  Company Number: 2004-12-1390

PATIENT
  Age: 68 Year
  Sex: Female
  Weight: 100 kg

DRUGS (3)
  1. ASPIRIN [Suspect]
     Route: 065
  2. INTEGRILIN [Suspect]
     Indication: THERAPEUTIC PROCEDURE
     Route: 040
     Dates: start: 20020201, end: 20020201
  3. HEPARIN [Concomitant]
     Dosage: 5000UD UNKNOWN
     Route: 040
     Dates: start: 20020201, end: 20020201

REACTIONS (1)
  - RETROPERITONEAL HAEMORRHAGE [None]
